FAERS Safety Report 14568003 (Version 3)
Quarter: 2018Q1

REPORT INFORMATION
  Report Type: Spontaneous
  Country: US (occurrence: US)
  Receive Date: 20180223
  Receipt Date: 20180308
  Transmission Date: 20180509
  Serious: Yes (Other)
  Sender: FDA-Public Use
  Company Number: US-PFIZER INC-2018072631

PATIENT
  Age: 78 Year
  Sex: Female

DRUGS (1)
  1. PROPOFOL. [Suspect]
     Active Substance: PROPOFOL
     Indication: SEDATIVE THERAPY
     Dosage: 0.01 MG/KG, PER MINUTE

REACTIONS (2)
  - Drug hypersensitivity [Recovered/Resolved]
  - Macroglossia [Recovered/Resolved]
